FAERS Safety Report 18924938 (Version 2)
Quarter: 2021Q1

REPORT INFORMATION
  Report Type: Spontaneous
  Country: US (occurrence: US)
  Receive Date: 20210223
  Receipt Date: 20210226
  Transmission Date: 20210420
  Serious: Yes (Other)
  Sender: FDA-Public Use
  Company Number: US-SPECGX-T202100287

PATIENT
  Sex: Female

DRUGS (47)
  1. BACLOFEN. [Suspect]
     Active Substance: BACLOFEN
     Dosage: 20 MILLIGRAM
     Route: 048
     Dates: start: 20120715
  2. BACLOFEN. [Suspect]
     Active Substance: BACLOFEN
     Dosage: UNK
     Route: 065
     Dates: start: 20131125
  3. BACLOFEN. [Suspect]
     Active Substance: BACLOFEN
     Dosage: 40 MILLIGRAM
     Dates: start: 20141202
  4. TIZANIDINE. [Suspect]
     Active Substance: TIZANIDINE
     Dosage: 0.5 MILLIGRAM
     Route: 065
     Dates: start: 20141202
  5. GLYCOPYRROLATE. [Suspect]
     Active Substance: GLYCOPYRROLATE
     Indication: PRODUCT USED FOR UNKNOWN INDICATION
     Dosage: 0.5 DOSAGE FORM, QD
     Route: 048
  6. KETOROLAC [Suspect]
     Active Substance: KETOROLAC TROMETHAMINE
     Indication: PRODUCT USED FOR UNKNOWN INDICATION
     Dosage: UNK
     Route: 065
     Dates: start: 20131125, end: 20131128
  7. MORPHINE [Suspect]
     Active Substance: MORPHINE
     Dosage: UNK
     Route: 065
     Dates: start: 20131125, end: 20131125
  8. MORPHINE [Suspect]
     Active Substance: MORPHINE
     Dosage: UNK
     Route: 065
     Dates: start: 20140917, end: 20140917
  9. SODIUM CHLORIDE. [Suspect]
     Active Substance: SODIUM CHLORIDE
     Dosage: UNK, 3 ML
     Route: 042
     Dates: start: 20141201
  10. TIZANIDINE. [Suspect]
     Active Substance: TIZANIDINE
     Dosage: UNK
     Route: 065
  11. MORPHINE [Suspect]
     Active Substance: MORPHINE
     Dosage: UNK
     Route: 065
     Dates: start: 20160330, end: 20160330
  12. ACETAMINOPHEN;HYDROCODONE [Suspect]
     Active Substance: ACETAMINOPHEN\HYDROCODONE
     Indication: PAIN
     Dosage: 1 DOSAGE FORM
     Route: 065
     Dates: start: 20140917, end: 20140917
  13. SODIUM CHLORIDE. [Suspect]
     Active Substance: SODIUM CHLORIDE
     Indication: CATHETER MANAGEMENT
     Dosage: UNK, 3 ML
     Route: 042
     Dates: start: 20131126
  14. BACLOFEN. [Suspect]
     Active Substance: BACLOFEN
     Indication: PRODUCT USED FOR UNKNOWN INDICATION
     Dosage: 20 MILLIGRAM
     Route: 048
     Dates: start: 20120714
  15. TOPIRAMATE. [Suspect]
     Active Substance: TOPIRAMATE
     Dosage: 30 MILLIGRAM, 2 TABLETS
     Route: 048
     Dates: start: 20120715
  16. ALBUTEROL. [Suspect]
     Active Substance: ALBUTEROL
     Dosage: UNK
     Dates: start: 20160330, end: 20160330
  17. MORPHINE [Suspect]
     Active Substance: MORPHINE
     Dosage: UNK, 0.5 MG 0.25 ML
     Route: 042
     Dates: start: 20131126
  18. MORPHINE [Suspect]
     Active Substance: MORPHINE
     Dosage: UNK, 0.5 MG 0.25 ML
     Route: 042
     Dates: start: 20131127
  19. ACETAMINOPHEN;HYDROCODONE [Suspect]
     Active Substance: ACETAMINOPHEN\HYDROCODONE
     Dosage: 1 DOSAGE FORM
     Route: 065
     Dates: start: 20160330, end: 20160330
  20. BACLOFEN. [Suspect]
     Active Substance: BACLOFEN
     Dosage: UNK (2 TABLET, THREE TIMES, GASTRIC TUBE)
     Route: 065
  21. BACLOFEN. [Suspect]
     Active Substance: BACLOFEN
     Dosage: UNK, 25 MG 2.5 ML
     Dates: start: 20131128
  22. TOPIRAMATE. [Suspect]
     Active Substance: TOPIRAMATE
     Dosage: UNK, 30 MG 5 ML
     Dates: start: 20131126
  23. ACETAMINOPHEN AND CODEINE [Suspect]
     Active Substance: ACETAMINOPHEN\CODEINE PHOSPHATE
     Indication: PAIN
     Dosage: UNK, 2 ML
     Dates: start: 20131128
  24. FENTANYL CITRATE. [Suspect]
     Active Substance: FENTANYL CITRATE
     Dosage: UNK
     Route: 065
     Dates: start: 20160330, end: 20160330
  25. ACETAMINOPHEN AND CODEINE [Suspect]
     Active Substance: ACETAMINOPHEN\CODEINE PHOSPHATE
     Indication: PAIN
     Dosage: UNK
     Route: 065
     Dates: start: 20131125, end: 20131125
  26. ACETAMINOPHEN AND CODEINE [Suspect]
     Active Substance: ACETAMINOPHEN\CODEINE PHOSPHATE
     Dosage: UNK
     Route: 065
     Dates: start: 20131127, end: 20131128
  27. MORPHINE [Suspect]
     Active Substance: MORPHINE
     Dosage: UNK, 0.2 MG 0.1 ML
     Route: 042
     Dates: start: 20131125
  28. BACLOFEN. [Suspect]
     Active Substance: BACLOFEN
     Dosage: UNK, 10 MG 1 ML
     Dates: start: 20131127
  29. BISACODYL. [Suspect]
     Active Substance: BISACODYL
     Indication: PRODUCT USED FOR UNKNOWN INDICATION
     Dosage: 10 MILLIGRAM, PRN (DAILY)
     Route: 054
  30. DOCUSATE [Suspect]
     Active Substance: DOCUSATE
     Indication: PRODUCT USED FOR UNKNOWN INDICATION
     Dosage: UNK
     Route: 065
  31. FENTANYL CITRATE. [Suspect]
     Active Substance: FENTANYL CITRATE
     Indication: PAIN
     Dosage: UNK
     Route: 065
     Dates: start: 20131125, end: 20131125
  32. MORPHINE [Suspect]
     Active Substance: MORPHINE
     Indication: PAIN
     Dosage: UNK
     Route: 065
     Dates: start: 20131125, end: 20131125
  33. MORPHINE [Suspect]
     Active Substance: MORPHINE
     Dosage: UNK
     Route: 065
     Dates: start: 20131126, end: 20131126
  34. MORPHINE [Suspect]
     Active Substance: MORPHINE
     Dosage: UNK
     Route: 065
     Dates: start: 20131127, end: 20131127
  35. TIZANIDINE. [Suspect]
     Active Substance: TIZANIDINE
     Indication: PRODUCT USED FOR UNKNOWN INDICATION
     Dosage: 1 MILLIGRAM
     Route: 048
     Dates: start: 20131127
  36. TIZANIDINE. [Suspect]
     Active Substance: TIZANIDINE
     Dosage: UNK
     Route: 065
     Dates: start: 20141215, end: 20141217
  37. ACETAMINOPHEN AND CODEINE [Suspect]
     Active Substance: ACETAMINOPHEN\CODEINE PHOSPHATE
     Dosage: UNK
     Route: 065
     Dates: start: 20131128, end: 20131128
  38. ALBUTEROL. [Suspect]
     Active Substance: ALBUTEROL
     Indication: WHEEZING
     Dosage: UNK, 1.25 MG, 3ML
     Dates: start: 20140917
  39. MORPHINE [Suspect]
     Active Substance: MORPHINE
     Indication: PAIN
     Dosage: UNK, 0.64 MG 0.32 ML
     Route: 042
     Dates: start: 20140917
  40. SODIUM CHLORIDE. [Suspect]
     Active Substance: SODIUM CHLORIDE
     Dosage: UNK, 3 ML
     Route: 042
     Dates: start: 20131128
  41. BACLOFEN. [Suspect]
     Active Substance: BACLOFEN
     Dosage: UNK, GASTRIC TUBE
     Route: 065
     Dates: start: 20141215, end: 20141217
  42. TOPIRAMATE. [Suspect]
     Active Substance: TOPIRAMATE
     Indication: PRODUCT USED FOR UNKNOWN INDICATION
     Dosage: 30 MILLIGRAM, 2 TABLETS
     Route: 048
     Dates: start: 20120713
  43. TOPIRAMATE. [Suspect]
     Active Substance: TOPIRAMATE
     Dosage: 30 MILLIGRAM, 2 TABLETS
     Route: 048
     Dates: start: 20120717
  44. FENTANYL. [Suspect]
     Active Substance: FENTANYL
     Indication: PAIN
     Dosage: UNK 2.5 MCG, 0.05 ML
     Route: 042
     Dates: start: 20140917
  45. MORPHINE [Suspect]
     Active Substance: MORPHINE
     Dosage: UNK
     Route: 065
     Dates: start: 20131128, end: 20131128
  46. SODIUM CHLORIDE. [Suspect]
     Active Substance: SODIUM CHLORIDE
     Dosage: UNK, 3 ML
     Route: 042
     Dates: start: 20131127
  47. CLOBAZAM. [Suspect]
     Active Substance: CLOBAZAM
     Indication: PRODUCT USED FOR UNKNOWN INDICATION
     Dosage: UNK, 7.5 MG, 3 ML, GASTRIC TUBE
     Route: 065
     Dates: start: 20171025

REACTIONS (7)
  - Constipation [Unknown]
  - Injury [Unknown]
  - Lung disorder [Unknown]
  - Drug dependence [Unknown]
  - Dysphagia [Unknown]
  - Epilepsy [Unknown]
  - Vomiting [Unknown]
